FAERS Safety Report 8108885-2 (Version None)
Quarter: 2012Q1

REPORT INFORMATION
  Report Type: 
  Country: None (occurrence: None)
  Receive Date: 20120202
  Receipt Date: 20120130
  Transmission Date: 20120608
  Serious: Yes (Hospitalization, Congenital Anomaly)
  Sender: FDA-Public Use
  Company Number: US-GLAXOSMITHKLINE-A0963991A

PATIENT
  Sex: Male

DRUGS (1)
  1. PAXIL [Suspect]
     Indication: STRESS
     Route: 064
     Dates: start: 19980811

REACTIONS (14)
  - HYPOKALAEMIA [None]
  - RESPIRATORY DISTRESS [None]
  - RETINOPATHY OF PREMATURITY [None]
  - PATENT DUCTUS ARTERIOSUS [None]
  - HUMERUS FRACTURE [None]
  - VESICOURETERIC REFLUX [None]
  - PULMONARY HYPOPLASIA [None]
  - EAGLE BARRETT SYNDROME [None]
  - FOETAL EXPOSURE DURING PREGNANCY [None]
  - CONGENITAL INGUINAL HERNIA [None]
  - ASCITES [None]
  - PULMONARY HYPERTENSION [None]
  - THROMBOCYTOPENIA [None]
  - HYDRONEPHROSIS [None]
